FAERS Safety Report 6454029-2 (Version None)
Quarter: 2009Q4

REPORT INFORMATION
  Report Type: 
  Country: None (occurrence: None)
  Receive Date: 20091124
  Receipt Date: 20091117
  Transmission Date: 20100525
  Serious: Yes (Hospitalization)
  Sender: FDA-Public Use
  Company Number: A0817450A

PATIENT
  Age: 22 Year
  Sex: Female

DRUGS (6)
  1. LAMICTAL [Suspect]
     Indication: CONVULSION
     Route: 048
     Dates: start: 20080101, end: 20091114
  2. WELLBUTRIN XL [Suspect]
     Indication: DRUG USE FOR UNKNOWN INDICATION
     Route: 048
  3. LITHIUM [Concomitant]
  4. MINOCYCLINE HCL [Concomitant]
  5. VALTREX [Concomitant]
  6. ABILIFY [Concomitant]

REACTIONS (5)
  - CONVULSION [None]
  - FEELING ABNORMAL [None]
  - SUBSTANCE ABUSE [None]
  - TREATMENT NONCOMPLIANCE [None]
  - WITHDRAWAL SYNDROME [None]
